FAERS Safety Report 4428302-3 (Version None)
Quarter: 2004Q3

REPORT INFORMATION
  Report Type: 
  Country: None (occurrence: None)
  Receive Date: 20040813
  Receipt Date: 20040803
  Transmission Date: 20050211
  Serious: Yes (Death)
  Sender: FDA-Public Use
  Company Number: USA-2004-0016259

PATIENT
  Age: 44 Year
  Sex: Male
  Weight: 91.6 kg

DRUGS (6)
  1. OXYCODONE HCL [Suspect]
  2. ALPRAZOLAM [Suspect]
  3. CANNABINOIDS [Suspect]
  4. PROMETHAZINE [Suspect]
  5. SALICYLIC ACID (SALICYLIC ACID) [Suspect]
  6. OXAZEPAM [Suspect]

REACTIONS (9)
  - ACCIDENT [None]
  - ACCIDENTAL OVERDOSE [None]
  - ATHEROSCLEROSIS [None]
  - CARDIOMEGALY [None]
  - DRUG TOXICITY [None]
  - INJECTION SITE DISCOLOURATION [None]
  - INJECTION SITE INDURATION [None]
  - PULMONARY CONGESTION [None]
  - PULMONARY OEDEMA [None]
